FAERS Safety Report 8930020 (Version 2)
Quarter: 2013Q1

REPORT INFORMATION
  Report Type: Report from Study
  Country: AU (occurrence: AU)
  Receive Date: 20121128
  Receipt Date: 20130226
  Transmission Date: 20140127
  Serious: Yes (Other)
  Sender: FDA-Public Use
  Company Number: AU-JNJFOC-20121113328

PATIENT
  Age: 41 Year
  Sex: Female

DRUGS (2)
  1. STELARA [Suspect]
     Indication: PSORIASIS
     Dosage: 12 DOSES TOTAL
     Route: 058
     Dates: start: 20100112
  2. STELARA [Suspect]
     Indication: PSORIASIS
     Dosage: 13TH INJECTION
     Route: 058
     Dates: start: 20121128

REACTIONS (2)
  - Osteoarthritis [Not Recovered/Not Resolved]
  - Psoriatic arthropathy [Unknown]
